FAERS Safety Report 8263669-X (Version None)
Quarter: 2012Q2

REPORT INFORMATION
  Report Type: 
  Country: None (occurrence: None)
  Receive Date: 20120405
  Receipt Date: 20120326
  Transmission Date: 20120825
  Serious: Yes (Hospitalization)
  Sender: FDA-Public Use
  Company Number: US-ABBOTT-12P-163-0918820-00

PATIENT
  Sex: Female

DRUGS (2)
  1. METHOTREXATE [Concomitant]
     Indication: PRODUCT USED FOR UNKNOWN INDICATION
  2. HUMIRA [Suspect]
     Indication: RHEUMATOID ARTHRITIS
     Route: 058
     Dates: start: 20110901

REACTIONS (6)
  - LOSS OF CONSCIOUSNESS [None]
  - ELECTROLYTE IMBALANCE [None]
  - BLOOD PRESSURE DECREASED [None]
  - PNEUMONIA PRIMARY ATYPICAL [None]
  - NASOPHARYNGITIS [None]
  - BRONCHITIS [None]
